FAERS Safety Report 5154712-5 (Version None)
Quarter: 2006Q4

REPORT INFORMATION
  Report Type: 
  Country: None (occurrence: None)
  Receive Date: 20061116
  Receipt Date: 20061116
  Transmission Date: 20070319
  Serious: Yes (Hospitalization, Disabling)
  Sender: FDA-Public Use
  Company Number: None

PATIENT
  Sex: Female
  Weight: 65 kg

DRUGS (2)
  1. AMIODARONE HCL [Suspect]
     Indication: ARRHYTHMIA
     Dosage: 1 TAB DAILY
     Dates: start: 20060101, end: 20060111
  2. PROTHIADEN [Concomitant]

REACTIONS (2)
  - ENCEPHALOMALACIA [None]
  - NERVOUS SYSTEM DISORDER [None]
